FAERS Safety Report 7878881-9 (Version None)
Quarter: 2011Q4

REPORT INFORMATION
  Report Type: 
  Country: None (occurrence: None)
  Receive Date: 20111024
  Receipt Date: 20110725
  Transmission Date: 20120403
  Serious: Yes (Other)
  Sender: FDA-Public Use
  Company Number: AMAG201100166

PATIENT
  Age: 85 Year
  Sex: Female
  Weight: 86.2 kg

DRUGS (4)
  1. ADVAIR HFA [Concomitant]
  2. FERAHEME [Suspect]
     Indication: IRON DEFICIENCY ANAEMIA
     Dosage: 510 MG, SINGLE, INTRAVENOUS
     Route: 042
     Dates: start: 20110725, end: 20110725
  3. METFORMIN HCL [Concomitant]
  4. COUMADIN [Concomitant]

REACTIONS (7)
  - LOSS OF CONSCIOUSNESS [None]
  - EYE MOVEMENT DISORDER [None]
  - BACK PAIN [None]
  - HYPOTENSION [None]
  - ANXIETY [None]
  - FLUSHING [None]
  - CHEST PAIN [None]
